FAERS Safety Report 5418329-7 (Version None)
Quarter: 2007Q3

REPORT INFORMATION
  Report Type: 
  Country: None (occurrence: None)
  Receive Date: 20070817
  Receipt Date: 20070807
  Transmission Date: 20080115
  Serious: Yes (Hospitalization)
  Sender: FDA-Public Use
  Company Number: NL-JNJFOC-20070801689

PATIENT
  Sex: Female
  Weight: 2.82 kg

DRUGS (14)
  1. REMICADE [Suspect]
  2. REMICADE [Suspect]
  3. REMICADE [Suspect]
  4. REMICADE [Suspect]
  5. REMICADE [Suspect]
     Indication: DRUG EXPOSURE DURING PREGNANCY
  6. PREDNISON [Concomitant]
  7. PREDNISON [Concomitant]
  8. PREDNISON [Concomitant]
  9. PREDNISON [Concomitant]
     Indication: DRUG EXPOSURE DURING PREGNANCY
  10. IMURAN [Concomitant]
     Indication: DRUG EXPOSURE DURING PREGNANCY
  11. CALCICHEW/D3 [Concomitant]
     Indication: DRUG EXPOSURE DURING PREGNANCY
  12. VITAMIN CAP [Concomitant]
     Indication: DRUG EXPOSURE DURING PREGNANCY
  13. FOLINIC ACID [Concomitant]
     Indication: DRUG EXPOSURE DURING PREGNANCY
  14. FERROGRADUMET [Concomitant]
     Indication: DRUG EXPOSURE DURING PREGNANCY

REACTIONS (2)
  - DRUG EXPOSURE DURING PREGNANCY [None]
  - PREMATURE BABY [None]
